FAERS Safety Report 19661017 (Version 1)
Quarter: 2021Q3

REPORT INFORMATION
  Report Type: Spontaneous
  Country: IN (occurrence: IN)
  Receive Date: 20210805
  Receipt Date: 20210805
  Transmission Date: 20211014
  Serious: Yes (Other)
  Sender: FDA-Public Use
  Company Number: IN-PFIZER INC-2021331310

PATIENT
  Age: 63 Year
  Sex: Male
  Weight: 60.8 kg

DRUGS (1)
  1. DACOMITINIB [Suspect]
     Active Substance: DACOMITINIB
     Indication: LUNG ADENOCARCINOMA
     Dosage: 45 MG, 1X/DAY
     Route: 048
     Dates: start: 20210323

REACTIONS (4)
  - Rash [Unknown]
  - Paronychia [Unknown]
  - Skin reaction [Unknown]
  - Nail infection [Unknown]
